FAERS Safety Report 5197271-3 (Version None)
Quarter: 2006Q4

REPORT INFORMATION
  Report Type: 
  Country: None (occurrence: None)
  Receive Date: 20061228
  Receipt Date: 20061218
  Transmission Date: 20070319
  Serious: Yes (Hospitalization)
  Sender: FDA-Public Use
  Company Number: GXKR2006FR08326

PATIENT
  Age: 45 Year
  Sex: Female

DRUGS (1)
  1. AMOXICILLIN+CLAVULANATE (NGX) (AMOXICILLIN, CLAVULANATE) FILM-COATED T [Suspect]
     Indication: CELLULITIS
     Dosage: 500 MG,ORAL
     Route: 048
     Dates: start: 20061028, end: 20061028

REACTIONS (2)
  - ANGIONEUROTIC OEDEMA [None]
  - MALAISE [None]
